FAERS Safety Report 8366139-3 (Version None)
Quarter: 2012Q2

REPORT INFORMATION
  Report Type: 
  Country: None (occurrence: None)
  Receive Date: 20120516
  Receipt Date: 20120516
  Transmission Date: 20120825
  Serious: Yes (Other)
  Sender: FDA-Public Use
  Company Number: None

PATIENT
  Age: 64 Year
  Sex: Female
  Weight: 98.4306 kg

DRUGS (1)
  1. SIMVASTATIN [Suspect]
     Indication: HYPERLIPIDAEMIA
     Dosage: 1 DAILY ORAL
     Route: 048

REACTIONS (1)
  - MUSCLE SPASMS [None]
